FAERS Safety Report 6357645-1 (Version None)
Quarter: 2009Q3

REPORT INFORMATION
  Report Type: 
  Country: None (occurrence: None)
  Receive Date: 20090916
  Receipt Date: 20090615
  Transmission Date: 20100115
  Serious: Yes (Other)
  Sender: FDA-Public Use
  Company Number: US-AMGEN-US348658

PATIENT
  Sex: Male
  Weight: 91.7 kg

DRUGS (2)
  1. NPLATE [Suspect]
     Route: 058
     Dates: start: 20081006, end: 20081222
  2. COZAAR [Concomitant]
     Dates: start: 20060601

REACTIONS (1)
  - DRUG INEFFECTIVE [None]
